FAERS Safety Report 5317507-5 (Version None)
Quarter: 2007Q2

REPORT INFORMATION
  Report Type: 
  Country: None (occurrence: None)
  Receive Date: 20070507
  Receipt Date: 20070427
  Transmission Date: 20071010
  Serious: Yes (Hospitalization, Other)
  Sender: FDA-Public Use
  Company Number: PHBS2007JP07347

PATIENT
  Age: 73 Year
  Sex: Female

DRUGS (3)
  1. ZOMETA [Suspect]
     Indication: METASTASES TO BONE
     Dosage: 4 MG, UNK
     Dates: start: 20060401, end: 20070301
  2. FEMARA [Concomitant]
     Dosage: 2.5 MG/DAY
     Route: 048
     Dates: start: 20060401
  3. AREDIA [Suspect]
     Indication: METASTASES TO BONE
     Dates: start: 20030301, end: 20060401

REACTIONS (3)
  - DENTAL TREATMENT [None]
  - HYPERBARIC OXYGEN THERAPY [None]
  - OSTEONECROSIS [None]
